FAERS Safety Report 17576289 (Version 1)
Quarter: 2020Q1

REPORT INFORMATION
  Report Type: Spontaneous
  Country: CH (occurrence: CH)
  Receive Date: 20200324
  Receipt Date: 20200324
  Transmission Date: 20200409
  Serious: Yes (Other)
  Sender: FDA-Public Use
  Company Number: CH-ASTRAZENECA-2020SE40860

PATIENT

DRUGS (6)
  1. PLATINE-ALIMTA [Concomitant]
     Dates: start: 20180126
  2. YERVOY [Concomitant]
     Active Substance: IPILIMUMAB
     Dates: start: 20190822
  3. IMFINZI [Suspect]
     Active Substance: DURVALUMAB
     Route: 042
     Dates: start: 20180620, end: 20190822
  4. AVASTIN [Concomitant]
     Active Substance: BEVACIZUMAB
     Dates: start: 20200227
  5. CARBOPLATIN. [Concomitant]
     Active Substance: CARBOPLATIN
     Dates: start: 20200227
  6. OPDIVO [Concomitant]
     Active Substance: NIVOLUMAB
     Dates: start: 20190822

REACTIONS (1)
  - Neoplasm progression [Unknown]
